FAERS Safety Report 7290407-X (Version None)
Quarter: 2011Q1

REPORT INFORMATION
  Report Type: 
  Country: None (occurrence: None)
  Receive Date: 20110214
  Receipt Date: 20110204
  Transmission Date: 20110831
  Serious: Yes (Other)
  Sender: FDA-Public Use
  Company Number: IT-SANOFI-AVENTIS-2010SA074310

PATIENT
  Age: 76 Year
  Sex: Female

DRUGS (2)
  1. DIGITALIS TAB [Concomitant]
     Route: 048
  2. MULTAQ [Suspect]
     Indication: ATRIAL FIBRILLATION
     Route: 048
     Dates: start: 20101126, end: 20101201

REACTIONS (5)
  - RENAL FAILURE ACUTE [None]
  - VOMITING [None]
  - NAUSEA [None]
  - ASTHENIA [None]
  - TREMOR [None]
